FAERS Safety Report 17532243 (Version 1)
Quarter: 2020Q1

REPORT INFORMATION
  Report Type: Report from Study
  Country: None (occurrence: CO)
  Receive Date: 20200311
  Receipt Date: 20200311
  Transmission Date: 20200409
  Serious: Yes (Hospitalization, Disabling, Other)
  Sender: FDA-Public Use
  Company Number: CO-ABBVIE-20K-036-3313902-00

PATIENT
  Age: 60 Year
  Sex: Male
  Weight: 69 kg

DRUGS (2)
  1. HUMIRA [Suspect]
     Active Substance: ADALIMUMAB
     Indication: ANKYLOSING SPONDYLITIS
     Route: 058
  2. HUMIRA [Suspect]
     Active Substance: ADALIMUMAB
     Indication: ANKYLOSING SPONDYLITIS
     Route: 058
     Dates: start: 20100504

REACTIONS (10)
  - Foot deformity [Recovered/Resolved]
  - Mass [Recovering/Resolving]
  - Haematoma [Recovering/Resolving]
  - Arthropathy [Recovered/Resolved]
  - Influenza [Recovering/Resolving]
  - Bone marrow disorder [Recovering/Resolving]
  - Wound infection [Recovered/Resolved]
  - Lung disorder [Recovering/Resolving]
  - Dry skin [Unknown]
  - Spinal disorder [Recovering/Resolving]

NARRATIVE: CASE EVENT DATE: 2012
